FAERS Safety Report 8424447-1 (Version None)
Quarter: 2012Q2

REPORT INFORMATION
  Report Type: 
  Country: None (occurrence: None)
  Receive Date: 20120610
  Receipt Date: 20120528
  Transmission Date: 20120825
  Serious: Yes (Hospitalization)
  Sender: FDA-Public Use
  Company Number: US-MYLANLABS-2012S1011126

PATIENT
  Age: 64 Year
  Sex: Male

DRUGS (2)
  1. CITALOPRAM [Suspect]
     Dosage: 60MG
     Route: 065
  2. ARIPIPRAZOLE [Interacting]
     Dosage: 5MG
     Route: 065

REACTIONS (2)
  - DRUG INTERACTION [None]
  - SEROTONIN SYNDROME [None]
